FAERS Safety Report 5080899-9 (Version None)
Quarter: 2006Q3

REPORT INFORMATION
  Report Type: 
  Country: None (occurrence: None)
  Receive Date: 20060810
  Receipt Date: 20060725
  Transmission Date: 20061208
  Serious: Yes (Hospitalization)
  Sender: FDA-Public Use
  Company Number: 8018162

PATIENT
  Age: 45 Year
  Sex: Female

DRUGS (4)
  1. KEPPRA [Suspect]
     Indication: EPILEPSY
     Dosage: 2.5 G /D PO
     Route: 048
     Dates: start: 20050101
  2. DEPAKENE [Suspect]
     Indication: EPILEPSY
     Dosage: 2 G /D PO
     Route: 048
     Dates: start: 20020101
  3. VALIUM [Suspect]
     Indication: DEPRESSION
     Dosage: 20 MG /D PO
     Route: 048
  4. SELOKEN          /00376902/ [Suspect]
     Dosage: 100 MG /D PO
     Route: 048

REACTIONS (4)
  - LOSS OF CONSCIOUSNESS [None]
  - VITAMIN B1 DECREASED [None]
  - VITAMIN B6 DECREASED [None]
  - WERNICKE'S ENCEPHALOPATHY [None]
